FAERS Safety Report 22655331 (Version 1)
Quarter: 2023Q2

REPORT INFORMATION
  Report Type: Spontaneous
  Country: IE (occurrence: IE)
  Receive Date: 20230629
  Receipt Date: 20230629
  Transmission Date: 20230721
  Serious: Yes (Other)
  Sender: FDA-Public Use
  Company Number: IE-BAXTER-2023BAX023243

PATIENT
  Age: 67 Year
  Sex: Male

DRUGS (2)
  1. DEXTROSE [Suspect]
     Active Substance: DEXTROSE\DEXTROSE MONOHYDRATE
     Indication: Medication dilution
     Dosage: 500 ML AT AN UNSPECIFIED FREQUENCY
     Route: 042
  2. OXALIPLATIN [Suspect]
     Active Substance: OXALIPLATIN
     Dosage: 274 MILLIGRAM (MG) DILUTED IN GLUCOSE 500 ML ADMINISTRATED AT UNSPECIFIED FREQUENCY, FINAL VOLUME 55
     Route: 042

REACTIONS (5)
  - Oxygen saturation decreased [Unknown]
  - Drug hypersensitivity [Recovered/Resolved with Sequelae]
  - Paraesthesia [Unknown]
  - Laryngospasm [Unknown]
  - Muscle spasms [Unknown]

NARRATIVE: CASE EVENT DATE: 20230509
